FAERS Safety Report 7167476-0 (Version None)
Quarter: 2010Q4

REPORT INFORMATION
  Report Type: 
  Country: None (occurrence: None)
  Receive Date: 20101216
  Receipt Date: 20100118
  Transmission Date: 20110411
  Serious: No
  Sender: FDA-Public Use
  Company Number: A0839886A

PATIENT
  Age: 54 Year
  Sex: Female

DRUGS (2)
  1. COMMIT [Suspect]
  2. NICODERM CQ [Suspect]

REACTIONS (7)
  - CHEST DISCOMFORT [None]
  - COUGH [None]
  - FEELING JITTERY [None]
  - HICCUPS [None]
  - NICOTINE DEPENDENCE [None]
  - NIGHTMARE [None]
  - OESOPHAGEAL PAIN [None]
